FAERS Safety Report 21871581 (Version 1)
Quarter: 2023Q1

REPORT INFORMATION
  Report Type: Spontaneous
  Country: US (occurrence: None)
  Receive Date: 20230113
  Receipt Date: 20230113
  Transmission Date: 20230418
  Serious: Yes (Hospitalization)
  Sender: FDA-Public Use
  Company Number: None

PATIENT
  Age: 83 Year
  Sex: Male
  Weight: 64.41 kg

DRUGS (15)
  1. LENALIDOMIDE [Suspect]
     Active Substance: LENALIDOMIDE
     Indication: Diffuse large B-cell lymphoma
     Dosage: 10MG DAILY ORAL
     Route: 048
  2. ACETAMINOPHEN [Concomitant]
     Active Substance: ACETAMINOPHEN
  3. ACYCLOVIR [Concomitant]
     Active Substance: ACYCLOVIR
  4. ALLOPURINOL [Concomitant]
     Active Substance: ALLOPURINOL
  5. ASPIRIN [Concomitant]
     Active Substance: ASPIRIN
  6. CORICIDIN HBP [Concomitant]
     Active Substance: ACETAMINOPHEN\CHLORPHENIRAMINE MALEATE
  7. ERYTHROMYCIN [Concomitant]
     Active Substance: ERYTHROMYCIN
  8. FAMOTIDINE [Concomitant]
     Active Substance: FAMOTIDINE
  9. GAS-X [Concomitant]
     Active Substance: DIMETHICONE
  10. HYDRALAZINE [Concomitant]
     Active Substance: HYDRALAZINE HYDROCHLORIDE
  11. LOSARTAN [Concomitant]
     Active Substance: LOSARTAN
  12. MAALOX MAX [Concomitant]
     Active Substance: ALUMINUM HYDROXIDE\DIMETHICONE\MAGNESIUM HYDROXIDE
  13. MYLANTA [Concomitant]
     Active Substance: ALUMINUM HYDROXIDE\DIMETHICONE\MAGNESIUM HYDROXIDE
  14. PANTOPRAZOLE [Concomitant]
     Active Substance: PANTOPRAZOLE
  15. TRAZODONE [Concomitant]
     Active Substance: TRAZODONE HYDROCHLORIDE

REACTIONS (2)
  - Renal disorder [None]
  - Blood calcium abnormal [None]
